FAERS Safety Report 9742689 (Version 1)
Quarter: 2013Q4

REPORT INFORMATION
  Report Type: Spontaneous
  Country: US (occurrence: US)
  Receive Date: 20131210
  Receipt Date: 20131210
  Transmission Date: 20140711
  Serious: No
  Sender: FDA-Public Use
  Company Number: US-GILEAD-2009-0025651

PATIENT
  Sex: Male
  Weight: 122.47 kg

DRUGS (9)
  1. LETAIRIS [Suspect]
     Indication: PULMONARY ARTERIAL HYPERTENSION
     Route: 048
     Dates: start: 20091005
  2. CLONIDINE [Concomitant]
  3. BUMEX [Concomitant]
  4. VERAPAMIL [Concomitant]
  5. METOLAZONE [Concomitant]
  6. WARFARIN [Concomitant]
  7. NORCO [Concomitant]
  8. POTASSIUM CHLORIDE [Concomitant]
  9. ASPIRIN [Concomitant]

REACTIONS (2)
  - Epistaxis [Unknown]
  - Nasal congestion [Unknown]
